FAERS Safety Report 7991740-6 (Version None)
Quarter: 2011Q4

REPORT INFORMATION
  Report Type: 
  Country: None (occurrence: None)
  Receive Date: 20111219
  Receipt Date: 20111214
  Transmission Date: 20120403
  Serious: Yes (Other)
  Sender: FDA-Public Use
  Company Number: BR-ABBOTT-11P-020-0851116-00

PATIENT
  Sex: Male
  Weight: 84 kg

DRUGS (5)
  1. HUMIRA [Suspect]
     Dosage: INDUCTION DOSE
     Route: 058
  2. HUMIRA [Suspect]
     Route: 058
  3. MESALAMINE [Concomitant]
     Indication: PROPHYLAXIS
  4. HUMIRA [Suspect]
     Indication: CROHN'S DISEASE
     Dosage: INDUCTION DOSE
     Route: 058
  5. MESALAMINE [Concomitant]
     Indication: NEOPLASM MALIGNANT
     Route: 048

REACTIONS (3)
  - DRUG INEFFECTIVE [None]
  - INTESTINAL STENOSIS [None]
  - GASTROINTESTINAL DISORDER [None]
